FAERS Safety Report 5069534-3 (Version None)
Quarter: 2006Q3

REPORT INFORMATION
  Report Type: 
  Country: None (occurrence: None)
  Receive Date: 20060731
  Receipt Date: 20060629
  Transmission Date: 20061208
  Serious: Yes (Life-Threatening, Hospitalization, Other)
  Sender: FDA-Public Use
  Company Number: 226335

PATIENT
  Age: 56 Year
  Sex: Female
  Weight: 84 kg

DRUGS (2)
  1. HERCEPTIN [Suspect]
     Dosage: 450 MG, INTRAVENOUS
     Route: 042
     Dates: start: 20060525, end: 20060526
  2. TAMOXIFEN CITRATE [Concomitant]

REACTIONS (2)
  - HYPERSENSITIVITY [None]
  - THROMBOCYTOPENIA [None]
